FAERS Safety Report 4346373-X (Version None)
Quarter: 2004Q2

REPORT INFORMATION
  Report Type: 
  Country: None (occurrence: None)
  Receive Date: 20040426
  Receipt Date: 20030403
  Transmission Date: 20050107
  Serious: No
  Sender: FDA-Public Use
  Company Number: US-GLAXOSMITHKLINE-A0403061A

PATIENT
  Age: 53 Year
  Sex: Female

DRUGS (11)
  1. ZOFRAN [Suspect]
     Indication: NAUSEA
     Dosage: 8MG THREE TIMES PER DAY
     Route: 048
     Dates: start: 19991001
  2. RANITIDINE [Concomitant]
     Route: 048
  3. GABITRIL [Concomitant]
     Route: 048
  4. CELEBREX [Concomitant]
     Route: 048
  5. WELLBUTRIN [Concomitant]
     Route: 048
  6. LASIX [Concomitant]
     Route: 048
  7. PREMARIN [Concomitant]
     Route: 048
  8. TRILEPTAL [Concomitant]
     Route: 048
  9. CLONAZEPAM [Concomitant]
     Route: 048
  10. OXYCODONE [Concomitant]
     Route: 048
  11. REMERON [Concomitant]
     Route: 048

REACTIONS (2)
  - DEMENTIA [None]
  - DYSPHAGIA [None]
